FAERS Safety Report 18867396 (Version 11)
Quarter: 2021Q3

REPORT INFORMATION
  Report Type: Report from Study
  Country: FR (occurrence: FR)
  Receive Date: 20210209
  Receipt Date: 20210806
  Transmission Date: 20211014
  Serious: Yes (Other)
  Sender: FDA-Public Use
  Company Number: FR-SA-2021SA036352

PATIENT
  Age: 76 Year
  Sex: Male
  Weight: 72 kg

DRUGS (8)
  1. ELIQUIS [Concomitant]
     Active Substance: APIXABAN
     Dosage: UNK
     Route: 048
     Dates: start: 2015
  2. LEVOTHYROX [Concomitant]
     Active Substance: LEVOTHYROXINE
     Dosage: UNK
     Route: 048
     Dates: start: 20201117
  3. DOCETAXEL. [Suspect]
     Active Substance: DOCETAXEL
     Indication: LUNG ADENOCARCINOMA
     Dosage: 75 MG/M2, Q3W
     Route: 042
     Dates: start: 20210104, end: 20210104
  4. LIPTRUZET [Concomitant]
     Active Substance: ATORVASTATIN CALCIUM\EZETIMIBE
     Dosage: UNK
     Route: 048
     Dates: start: 202004
  5. COVERAM [Concomitant]
     Active Substance: AMLODIPINE\PERINDOPRIL
     Dosage: UNK
     Route: 048
     Dates: start: 2015
  6. BINOCRIT [Concomitant]
     Active Substance: ERYTHROPOIETIN
     Indication: PROPHYLAXIS
     Dosage: UNK
     Route: 058
     Dates: start: 20201211
  7. DOCETAXEL. [Suspect]
     Active Substance: DOCETAXEL
     Dosage: 75 MG/M2, Q3W
     Route: 042
     Dates: start: 20201120, end: 20201120
  8. FLECAINE [Concomitant]
     Active Substance: FLECAINIDE
     Dosage: UNK
     Route: 048
     Dates: start: 2015

REACTIONS (2)
  - Cholestasis [Recovered/Resolved]
  - Transaminases increased [Recovered/Resolved]

NARRATIVE: CASE EVENT DATE: 20210126
